FAERS Safety Report 12519128 (Version 1)
Quarter: 2016Q2

REPORT INFORMATION
  Report Type: Other
  Country: US (occurrence: US)
  Receive Date: 20160630
  Receipt Date: 20160630
  Transmission Date: 20160815
  Serious: Yes (Hospitalization, Other)
  Sender: FDA-Public Use
  Company Number: US-ACORDA-ACO_125439_2016

PATIENT
  Age: 67 Year
  Sex: Female

DRUGS (1)
  1. AMPYRA [Suspect]
     Active Substance: DALFAMPRIDINE
     Indication: MULTIPLE SCLEROSIS
     Dosage: 10 MG, BID
     Route: 048
     Dates: start: 20130702

REACTIONS (4)
  - Urine leukocyte esterase positive [Unknown]
  - Red blood cells urine positive [Unknown]
  - Haemoglobin urine present [Unknown]
  - Dysuria [Unknown]

NARRATIVE: CASE EVENT DATE: 20160523
